FAERS Safety Report 8176347-2 (Version None)
Quarter: 2012Q1

REPORT INFORMATION
  Report Type: 
  Country: None (occurrence: None)
  Receive Date: 20120301
  Receipt Date: 20120224
  Transmission Date: 20120608
  Serious: Yes (Other)
  Sender: FDA-Public Use
  Company Number: DE-B.I. PHARMACEUTICALS,INC./RIDGEFIELD-2011-DE-06907DE

PATIENT
  Sex: Female

DRUGS (9)
  1. PANTOPRAZOLE [Suspect]
     Dosage: 160 MG
     Route: 048
  2. MICARDIS [Suspect]
     Dosage: 160 MG
     Route: 048
  3. TORSEMIDE [Suspect]
     Dosage: 60 MG
     Route: 048
  4. ASPIRIN [Suspect]
     Dosage: 400 MG
     Route: 048
  5. ARCOXIA [Suspect]
     Dosage: 360 MG
     Route: 048
  6. ISOSORBIDE MONONITRATE [Suspect]
     Dosage: 320 MG
     Route: 048
  7. CORVATON [Suspect]
     Dosage: 32 MG
     Route: 048
  8. CALCIUM CARBONATE [Suspect]
     Route: 048
  9. METOPROLOL TARTRATE AND HYDROCHLOROTHIAZIDE [Suspect]
     Dosage: 380 MG
     Route: 048

REACTIONS (3)
  - SUICIDE ATTEMPT [None]
  - FATIGUE [None]
  - HYPOTENSION [None]
